FAERS Safety Report 23990658 (Version 1)
Quarter: 2024Q2

REPORT INFORMATION
  Report Type: Spontaneous
  Country: BE (occurrence: BE)
  Receive Date: 20240619
  Receipt Date: 20240619
  Transmission Date: 20240715
  Serious: Yes (Other)
  Sender: FDA-Public Use
  Company Number: BE-PFM-2024-03395

PATIENT
  Age: 52 Year
  Sex: Female

DRUGS (12)
  1. IPILIMUMAB [Suspect]
     Active Substance: IPILIMUMAB
     Indication: Malignant melanoma
     Dosage: UNK
  2. IPILIMUMAB [Suspect]
     Active Substance: IPILIMUMAB
     Indication: BRAF V600E mutation positive
  3. NIVOLUMAB [Suspect]
     Active Substance: NIVOLUMAB
     Indication: BRAF V600E mutation positive
     Dosage: UNK
  4. NIVOLUMAB [Suspect]
     Active Substance: NIVOLUMAB
     Indication: Malignant melanoma
  5. BINIMETINIB [Suspect]
     Active Substance: BINIMETINIB
     Indication: BRAF V600E mutation positive
     Dosage: 15 MG, BID (2/DAY)
     Dates: start: 202110, end: 202112
  6. BINIMETINIB [Suspect]
     Active Substance: BINIMETINIB
     Indication: Malignant melanoma
  7. DABRAFENIB\TRAMETINIB [Suspect]
     Active Substance: DABRAFENIB\TRAMETINIB
     Indication: BRAF V600E mutation positive
     Dosage: UNK
  8. DABRAFENIB\TRAMETINIB [Suspect]
     Active Substance: DABRAFENIB\TRAMETINIB
     Indication: Malignant melanoma
  9. REGORAFENIB [Suspect]
     Active Substance: REGORAFENIB
     Indication: BRAF V600E mutation positive
     Dosage: 80 MG, QD (1/DAY)
     Dates: start: 202110, end: 202112
  10. REGORAFENIB [Suspect]
     Active Substance: REGORAFENIB
     Indication: Malignant melanoma
  11. ENCORAFENIB [Suspect]
     Active Substance: ENCORAFENIB
     Indication: BRAF V600E mutation positive
     Dosage: 300 MG, QD (1/DAY)
     Dates: start: 2021, end: 202112
  12. ENCORAFENIB [Suspect]
     Active Substance: ENCORAFENIB
     Indication: Malignant melanoma

REACTIONS (1)
  - Epilepsy [Unknown]
